FAERS Safety Report 12930570 (Version 2)
Quarter: 2016Q4

REPORT INFORMATION
  Report Type: Spontaneous
  Country: JP (occurrence: JP)
  Receive Date: 20161110
  Receipt Date: 20161207
  Transmission Date: 20170207
  Serious: Yes (Hospitalization)
  Sender: FDA-Public Use
  Company Number: JP-DSJP-DSJ-2016-136960

PATIENT

DRUGS (3)
  1. UROKINASE [Suspect]
     Active Substance: UROKINASE
     Indication: THROMBOLYSIS
     Dosage: UNK
     Route: 065
  2. LIXIANA TABLETS [Suspect]
     Active Substance: EDOXABAN TOSILATE MONOHYDRATE
     Indication: ATRIAL FIBRILLATION
     Dosage: 30MG/DAY
     Route: 065
  3. LIXIANA TABLETS [Suspect]
     Active Substance: EDOXABAN TOSILATE MONOHYDRATE
     Dosage: 60MG/DAY
     Route: 065

REACTIONS (3)
  - Cerebral infarction [Unknown]
  - Retinal artery occlusion [Unknown]
  - Cerebral microhaemorrhage [Unknown]
